FAERS Safety Report 5258981-2 (Version None)
Quarter: 2007Q1

REPORT INFORMATION
  Report Type: 
  Country: None (occurrence: None)
  Receive Date: 20061117
  Receipt Date: 20060313
  Transmission Date: 20070707
  Serious: Yes (Hospitalization)
  Sender: FDA-Public Use
  Company Number: US-JNJFOC-20051101886

PATIENT
  Age: 73 Year
  Sex: Male
  Weight: 83.9154 kg

DRUGS (4)
  1. LEVAQUIN [Suspect]
     Indication: TUBERCULOSIS
     Dosage: 750 MG, 1 IN 1 DAY, ORAL
     Route: 048
     Dates: start: 20051031, end: 20051031
  2. RIFAMATE (RIFINAH) [Concomitant]
  3. PYRAZINAMIDE [Concomitant]
  4. VITAMIN B6 [Concomitant]

REACTIONS (6)
  - FEELING COLD [None]
  - NAUSEA [None]
  - PYREXIA [None]
  - RASH GENERALISED [None]
  - TREMOR [None]
  - VOMITING [None]
